FAERS Safety Report 18009393 (Version 2)
Quarter: 2020Q3

REPORT INFORMATION
  Report Type: Spontaneous
  Country: RU (occurrence: RU)
  Receive Date: 20200710
  Receipt Date: 20200817
  Transmission Date: 20201104
  Serious: Yes (Other)
  Sender: FDA-Public Use
  Company Number: RU-ROCHE-2639221

PATIENT

DRUGS (1)
  1. EMICIZUMAB. [Suspect]
     Active Substance: EMICIZUMAB
     Indication: FACTOR VIII DEFICIENCY
     Route: 065

REACTIONS (2)
  - Multiple injuries [Unknown]
  - Joint dislocation [Unknown]
